FAERS Safety Report 8776795 (Version 1)
Quarter: 2012Q4

REPORT INFORMATION
  Report Type: 
  Country: US (occurrence: US)
  Receive Date: 20120910
  Receipt Date: 20120910
  Transmission Date: 20130627
  Serious: Yes (Other)
  Sender: FDA-Public Use
  Company Number: US-BAYER-2012-093232

PATIENT
  Age: 52 Year
  Sex: Female
  Weight: 91 kg

DRUGS (1)
  1. BAYER ADVANCED ASPIRIN EXTRA STRENGTH [Suspect]
     Indication: PAIN
     Dosage: 1 DF, PRN
     Route: 048
     Dates: start: 20120903, end: 20120903

REACTIONS (2)
  - Swollen tongue [Recovered/Resolved]
  - Obstructive airways disorder [Recovered/Resolved]
